FAERS Safety Report 6681747-3 (Version None)
Quarter: 2010Q2

REPORT INFORMATION
  Report Type: 
  Country: None (occurrence: None)
  Receive Date: 20100414
  Receipt Date: 20100329
  Transmission Date: 20101027
  Serious: Yes (Hospitalization)
  Sender: FDA-Public Use
  Company Number: FR-GENENTECH-300143

PATIENT
  Sex: Female
  Weight: 64 kg

DRUGS (5)
  1. RITUXIMAB [Suspect]
     Indication: MANTLE CELL LYMPHOMA
     Dosage: 690 MG, X1
     Route: 041
     Dates: start: 20090626, end: 20090828
  2. CYTARABINE [Suspect]
     Indication: MANTLE CELL LYMPHOMA
     Dosage: 4 G, UNK
     Route: 042
     Dates: start: 20090622, end: 20090828
  3. CISPLATIN [Suspect]
     Indication: MANTLE CELL LYMPHOMA
     Dosage: 100 MG/M2, X1
     Route: 042
     Dates: start: 20090622, end: 20090828
  4. DEXAMETHASONE [Suspect]
     Indication: MANTLE CELL LYMPHOMA
     Dosage: 80 MG, X4
     Route: 042
     Dates: start: 20090622, end: 20090829
  5. DEXAMETHASONE [Suspect]
     Dosage: 80 MG, X4
     Route: 048
     Dates: start: 20090624, end: 20090831

REACTIONS (3)
  - HAEMATOMA [None]
  - RECTAL HAEMORRHAGE [None]
  - THROMBOCYTOPENIA [None]
